FAERS Safety Report 11204537 (Version 1)
Quarter: 2015Q2

REPORT INFORMATION
  Report Type: Report from Study
  Country: US (occurrence: US)
  Receive Date: 20150622
  Receipt Date: 20150622
  Transmission Date: 20150821
  Serious: Yes (Hospitalization)
  Sender: FDA-Public Use
  Company Number: US-ABBVIE-15K-163-1409788-00

PATIENT
  Age: 15 Year
  Sex: Male
  Weight: 49.94 kg

DRUGS (7)
  1. ZOLOFT [Concomitant]
     Active Substance: SERTRALINE HYDROCHLORIDE
     Indication: ANXIETY
  2. HUMIRA [Suspect]
     Active Substance: ADALIMUMAB
     Indication: CROHN^S DISEASE
     Route: 058
     Dates: start: 2012, end: 2012
  3. HUMIRA [Suspect]
     Active Substance: ADALIMUMAB
     Dosage: TWO WEEKS AFTER 120 MG DOSE
     Route: 058
     Dates: start: 2012, end: 2012
  4. NORCO [Concomitant]
     Active Substance: ACETAMINOPHEN\HYDROCODONE BITARTRATE
     Indication: PAIN
  5. HUMIRA [Suspect]
     Active Substance: ADALIMUMAB
     Dosage: FOUR WEEKS AFTER 120 MG DOSE
     Route: 058
     Dates: start: 2012
  6. LIPOSYN [Concomitant]
     Active Substance: SAFFLOWER OIL
     Indication: CROHN^S DISEASE
  7. ENTOCORT [Concomitant]
     Active Substance: BUDESONIDE
     Indication: PRODUCT USED FOR UNKNOWN INDICATION

REACTIONS (3)
  - Ileal fistula [Unknown]
  - Crohn^s disease [Not Recovered/Not Resolved]
  - Abscess intestinal [Not Recovered/Not Resolved]

NARRATIVE: CASE EVENT DATE: 20150515
